FAERS Safety Report 19482151 (Version 1)
Quarter: 2021Q3

REPORT INFORMATION
  Report Type: Spontaneous
  Country: US (occurrence: US)
  Receive Date: 20210701
  Receipt Date: 20210701
  Transmission Date: 20211014
  Serious: No
  Sender: FDA-Public Use
  Company Number: US-CELGENEUS-USA-20210606629

PATIENT
  Age: 21 Year
  Sex: Female
  Weight: 74.91 kg

DRUGS (3)
  1. MULTIVITAMIN [Concomitant]
     Active Substance: VITAMINS
     Indication: SUPPLEMENTATION THERAPY
     Route: 048
  2. LEVOTHYROXINE. [Concomitant]
     Active Substance: LEVOTHYROXINE
     Indication: HYPOTHYROIDISM
     Route: 048
  3. ZEPOSIA [Suspect]
     Active Substance: OZANIMOD HYDROCHLORIDE
     Indication: RELAPSING MULTIPLE SCLEROSIS
     Dosage: .92 MILLIGRAM
     Route: 048
     Dates: start: 20210307

REACTIONS (2)
  - Lymphocyte count decreased [Unknown]
  - Multiple allergies [Unknown]

NARRATIVE: CASE EVENT DATE: 20210609
